FAERS Safety Report 5515998-8 (Version None)
Quarter: 2007Q4

REPORT INFORMATION
  Report Type: 
  Country: None (occurrence: None)
  Receive Date: 20071114
  Receipt Date: 20061129
  Transmission Date: 20080405
  Serious: No
  Sender: FDA-Public Use
  Company Number: A0626818A

PATIENT
  Age: 63 Year
  Sex: Female

DRUGS (1)
  1. COMMIT [Suspect]
     Indication: DRUG USE FOR UNKNOWN INDICATION
     Dosage: 4MG SINGLE DOSE
     Route: 002
     Dates: start: 20061120, end: 20061120

REACTIONS (1)
  - NAUSEA [None]
